FAERS Safety Report 24077969 (Version 1)
Quarter: 2024Q3

REPORT INFORMATION
  Report Type: Spontaneous
  Country: CN (occurrence: CN)
  Receive Date: 20240711
  Receipt Date: 20240711
  Transmission Date: 20241016
  Serious: Yes (Other)
  Sender: MSN LABORATORIES
  Company Number: CN-MSNLABS-2024MSNLIT01549

PATIENT

DRUGS (1)
  1. OSELTAMIVIR [Suspect]
     Active Substance: OSELTAMIVIR
     Indication: HCoV-HKU1 infection
     Route: 065

REACTIONS (1)
  - Drug ineffective [Unknown]
